FAERS Safety Report 18103917 (Version 2)
Quarter: 2021Q2

REPORT INFORMATION
  Report Type: Spontaneous
  Country: GB (occurrence: GB)
  Receive Date: 20200803
  Receipt Date: 20210628
  Transmission Date: 20210717
  Serious: Yes (Hospitalization, Other)
  Sender: FDA-Public Use
  Company Number: GB-TEVA-2020-GB-1809828

PATIENT
  Age: 67 Year
  Sex: Male

DRUGS (6)
  1. BORTEZOMIB. [Suspect]
     Active Substance: BORTEZOMIB
     Indication: IMMUNOSUPPRESSANT DRUG THERAPY
     Route: 065
     Dates: start: 201604
  2. DEXAMETHASONE. [Suspect]
     Active Substance: DEXAMETHASONE
     Indication: IMMUNOSUPPRESSANT DRUG THERAPY
     Route: 065
     Dates: start: 201604
  3. THALIDOMIDE [Suspect]
     Active Substance: THALIDOMIDE
     Indication: IMMUNOSUPPRESSANT DRUG THERAPY
     Route: 065
     Dates: start: 201604
  4. MELPHALAN. [Suspect]
     Active Substance: MELPHALAN
     Indication: IMMUNOSUPPRESSANT DRUG THERAPY
     Route: 065
  5. PENTAMIDINE [Concomitant]
     Active Substance: PENTAMIDINE
     Indication: ANTIFUNGAL PROPHYLAXIS
     Route: 065
     Dates: start: 201704, end: 201707
  6. TRIMETHOPRIM/SULFAMETHOXAZOLE [Concomitant]
     Active Substance: SULFAMETHOXAZOLE\TRIMETHOPRIM
     Indication: ANTIFUNGAL PROPHYLAXIS
     Route: 065
     Dates: end: 201704

REACTIONS (15)
  - Gait spastic [Unknown]
  - Dementia [Unknown]
  - Hemiparesis [Unknown]
  - Neutropenic sepsis [Unknown]
  - Cognitive disorder [Unknown]
  - Motion sickness [Unknown]
  - Herpes zoster [Unknown]
  - Progressive multifocal leukoencephalopathy [Unknown]
  - Fine motor skill dysfunction [Unknown]
  - Affect lability [Unknown]
  - Pneumonia [Unknown]
  - Gait disturbance [Unknown]
  - Escherichia infection [Unknown]
  - JC virus infection [Unknown]
  - Gait inability [Unknown]

NARRATIVE: CASE EVENT DATE: 2017
